FAERS Safety Report 8295240-8 (Version None)
Quarter: 2012Q2

REPORT INFORMATION
  Report Type: 
  Country: None (occurrence: None)
  Receive Date: 20120418
  Receipt Date: 20120406
  Transmission Date: 20120825
  Serious: Yes (Death, Disabling)
  Sender: FDA-Public Use
  Company Number: MX-ROCHE-1058112

PATIENT
  Sex: Male

DRUGS (4)
  1. XELODA [Suspect]
     Route: 048
  2. XELODA [Suspect]
     Route: 048
  3. XELODA [Suspect]
     Indication: GASTROINTESTINAL CANCER METASTATIC
     Route: 048
     Dates: start: 20110301
  4. XELODA [Suspect]
     Route: 048

REACTIONS (3)
  - PALMAR-PLANTAR ERYTHRODYSAESTHESIA SYNDROME [None]
  - NEUROTOXICITY [None]
  - BLINDNESS [None]
